FAERS Safety Report 5756300-6 (Version None)
Quarter: 2008Q2

REPORT INFORMATION
  Report Type: 
  Country: None (occurrence: None)
  Receive Date: 20080528
  Receipt Date: 20080528
  Transmission Date: 20081010
  Serious: Yes (Life-Threatening)
  Sender: FDA-Public Use
  Company Number: None

PATIENT
  Age: 36 Year
  Sex: Female
  Weight: 58.0604 kg

DRUGS (1)
  1. CEPHALEXIN [Suspect]
     Indication: TOOTH INFECTION
     Dosage: 3 TIMES A DAY FOR 7 DAYS PO
     Route: 048
     Dates: start: 20080313, end: 20080313

REACTIONS (1)
  - ANAPHYLACTIC REACTION [None]
